FAERS Safety Report 8604472-8 (Version None)
Quarter: 2012Q3

REPORT INFORMATION
  Report Type: 
  Country: None (occurrence: None)
  Receive Date: 20120820
  Receipt Date: 20120809
  Transmission Date: 20120928
  Serious: Yes (Other)
  Sender: FDA-Public Use
  Company Number: FR-JNJFOC-20120807094

PATIENT

DRUGS (4)
  1. DARUNAVIR ETHANOLATE [Suspect]
     Indication: HIV INFECTION
     Route: 065
  2. RITONAVIR [Suspect]
     Indication: HIV INFECTION
     Route: 065
  3. ETRAVIRINE [Suspect]
     Indication: HIV INFECTION
     Route: 065
  4. RALTEGRAVIR [Suspect]
     Indication: HIV INFECTION
     Route: 065

REACTIONS (2)
  - VIROLOGIC FAILURE [None]
  - LABORATORY TEST ABNORMAL [None]
